FAERS Safety Report 4906619-3 (Version None)
Quarter: 2006Q1

REPORT INFORMATION
  Report Type: 
  Country: None (occurrence: None)
  Receive Date: 20060209
  Receipt Date: 20060130
  Transmission Date: 20060701
  Serious: Yes (Other)
  Sender: FDA-Public Use
  Company Number: FR-GLAXOSMITHKLINE-B0408633A

PATIENT
  Age: 37 Year
  Sex: Female

DRUGS (1)
  1. TRIZIVIR [Suspect]
     Indication: HIV INFECTION
     Dosage: 30TAB PER DAY
     Route: 048

REACTIONS (3)
  - INTENTIONAL OVERDOSE [None]
  - NO ADVERSE EFFECT [None]
  - SUICIDE ATTEMPT [None]
